FAERS Safety Report 6991719-7 (Version None)
Quarter: 2010Q3

REPORT INFORMATION
  Report Type: 
  Country: None (occurrence: None)
  Receive Date: 20100915
  Receipt Date: 20100915
  Transmission Date: 20110219
  Serious: Yes (Other)
  Sender: FDA-Public Use
  Company Number: None

PATIENT
  Age: 42 Year
  Sex: Male
  Weight: 99.7913 kg

DRUGS (1)
  1. OXYCONTIN [Suspect]
     Indication: PAIN
     Dosage: 80 MG 5 TIMES DAILY PO
     Route: 048
     Dates: start: 20100912, end: 20100914

REACTIONS (4)
  - HEADACHE [None]
  - NAUSEA [None]
  - PRODUCT FORMULATION ISSUE [None]
  - WITHDRAWAL SYNDROME [None]
